FAERS Safety Report 8968007 (Version 1)
Quarter: 2012Q4

REPORT INFORMATION
  Report Type: Spontaneous
  Country: IT (occurrence: None)
  Receive Date: 20121210
  Receipt Date: 20121210
  Transmission Date: 20130627
  Serious: Yes (Hospitalization)
  Sender: FDA-Public Use
  Company Number: AUR-APL-2012-05230

PATIENT
  Age: 57 Year
  Sex: Female

DRUGS (3)
  1. CEFTRIAXONE (CEFTRIAXONE) [Suspect]
     Indication: THROAT PAIN
     Route: 030
     Dates: start: 20120705, end: 20120711
  2. LEVOFLOXACIN (LEVOFLOXACIN) [Suspect]
     Indication: THROAT PAIN
     Route: 048
     Dates: start: 20120712, end: 20120712
  3. SYNFLEX [Suspect]
     Indication: HEADACHE
     Route: 048
     Dates: start: 20120712, end: 20120713

REACTIONS (4)
  - Pruritus [None]
  - Urticaria [None]
  - Hepatic enzyme increased [None]
  - Hepatocellular injury [None]
